FAERS Safety Report 13948015 (Version 4)
Quarter: 2018Q1

REPORT INFORMATION
  Report Type: Spontaneous
  Country: US (occurrence: US)
  Receive Date: 20170908
  Receipt Date: 20180122
  Transmission Date: 20180508
  Serious: No
  Sender: FDA-Public Use
  Company Number: US-PFIZER INC-2017386287

PATIENT
  Age: 69 Year
  Sex: Female

DRUGS (1)
  1. NICOTROL [Suspect]
     Active Substance: NICOTINE
     Dosage: UNK
     Dates: start: 20150114

REACTIONS (6)
  - Tongue discomfort [Unknown]
  - Cough [Unknown]
  - Oral discomfort [Unknown]
  - Expired product administered [Unknown]
  - Oral pain [Unknown]
  - Glossodynia [Unknown]
